FAERS Safety Report 4386353-1 (Version None)
Quarter: 2004Q2

REPORT INFORMATION
  Report Type: 
  Country: None (occurrence: None)
  Receive Date: 20040623
  Receipt Date: 20040429
  Transmission Date: 20050107
  Serious: Yes (Hospitalization, Other)
  Sender: FDA-Public Use
  Company Number: CA_040607018

PATIENT
  Sex: Female

DRUGS (1)
  1. HUMULIN-HUMAN INSULIN (RDNA) UNKNOWN FORM FORMULATION (HU [Suspect]
     Indication: DIABETES MELLITUS INSULIN-DEPENDENT
     Dates: start: 19990501, end: 20010301

REACTIONS (18)
  - AMNESIA [None]
  - ANXIETY [None]
  - BRAIN DAMAGE [None]
  - CEREBROVASCULAR ACCIDENT [None]
  - DEPRESSION [None]
  - GENERAL PHYSICAL HEALTH DETERIORATION [None]
  - HYPOGLYCAEMIA UNAWARENESS [None]
  - HYPOGLYCAEMIC COMA [None]
  - MOOD SWINGS [None]
  - MORBID THOUGHTS [None]
  - NEUROPATHY [None]
  - PANCREAS TRANSPLANT [None]
  - PANCREATIC INSUFFICIENCY [None]
  - PREGNANCY [None]
  - RENAL FAILURE [None]
  - RENAL TRANSPLANT [None]
  - RETINOPATHY [None]
  - SHOCK HYPOGLYCAEMIC [None]
